FAERS Safety Report 5469268-7 (Version None)
Quarter: 2007Q3

REPORT INFORMATION
  Report Type: 
  Country: None (occurrence: None)
  Receive Date: 20070926
  Receipt Date: 20070926
  Transmission Date: 20080115
  Serious: Yes (Hospitalization, Other)
  Sender: FDA-Public Use
  Company Number: None

PATIENT
  Sex: Male
  Weight: 31.7 kg

DRUGS (1)
  1. METHOTREXATE [Suspect]
     Indication: ACUTE LYMPHOCYTIC LEUKAEMIA
     Dosage: 545 MG + 4860 MG  X1  IV DRIP
     Route: 041
     Dates: start: 20070119, end: 20070120

REACTIONS (3)
  - DRUG CLEARANCE DECREASED [None]
  - HYPERTENSION [None]
  - RENAL FAILURE [None]
